FAERS Safety Report 12263979 (Version 4)
Quarter: 2016Q3

REPORT INFORMATION
  Report Type: Report from Study
  Country: US (occurrence: US)
  Receive Date: 20160413
  Receipt Date: 20160909
  Transmission Date: 20161109
  Serious: Yes (Hospitalization, Other)
  Sender: FDA-Public Use
  Company Number: US-JNJFOC-20160402728

PATIENT
  Sex: Female
  Weight: 58 kg

DRUGS (9)
  1. MIRAPEX [Concomitant]
     Active Substance: PRAMIPEXOLE DIHYDROCHLORIDE
  2. BACTRIM [Concomitant]
     Active Substance: SULFAMETHOXAZOLE\TRIMETHOPRIM
  3. ACYCLOVIR. [Concomitant]
     Active Substance: ACYCLOVIR
  4. IMBRUVICA [Suspect]
     Active Substance: IBRUTINIB
     Indication: CHRONIC LYMPHOCYTIC LEUKAEMIA
     Route: 048
     Dates: start: 20140320
  5. TYLENOL [Concomitant]
     Active Substance: ACETAMINOPHEN
  6. ALLOPURINOL. [Concomitant]
     Active Substance: ALLOPURINOL
  7. ATENOLOL. [Concomitant]
     Active Substance: ATENOLOL
  8. FLEXERIL [Concomitant]
     Active Substance: CYCLOBENZAPRINE HYDROCHLORIDE
  9. LIPITOR [Concomitant]
     Active Substance: ATORVASTATIN CALCIUM

REACTIONS (8)
  - Blood creatinine increased [Unknown]
  - Red blood cell count decreased [Unknown]
  - Myelodysplastic syndrome [Not Recovered/Not Resolved]
  - Renal disorder [Unknown]
  - Platelet count decreased [Unknown]
  - White blood cell count decreased [Unknown]
  - General physical health deterioration [Unknown]
  - Dysphagia [Unknown]
